FAERS Safety Report 20638468 (Version 1)
Quarter: 2022Q1

REPORT INFORMATION
  Report Type: Report from Study
  Country: FR (occurrence: FR)
  Receive Date: 20220325
  Receipt Date: 20220325
  Transmission Date: 20220424
  Serious: Yes (Hospitalization)
  Sender: FDA-Public Use
  Company Number: FR-PFIZER INC-202200076260

PATIENT
  Age: 54 Year
  Sex: Male
  Weight: 76 kg

DRUGS (11)
  1. PALBOCICLIB [Suspect]
     Active Substance: PALBOCICLIB
     Indication: Neurofibrosarcoma
     Dosage: 125 MG
     Route: 048
     Dates: start: 20211217, end: 20220106
  2. DOXORUBICIN HYDROCHLORIDE [Suspect]
     Active Substance: DOXORUBICIN HYDROCHLORIDE
     Indication: Neurofibrosarcoma
     Dosage: 152 MG
     Dates: start: 20210604, end: 20210917
  3. ZYTIGA [Concomitant]
     Active Substance: ABIRATERONE ACETATE
     Indication: Prostate cancer
     Dosage: 100 MG
     Route: 048
     Dates: start: 20190521
  4. IRBESARTAN [Concomitant]
     Active Substance: IRBESARTAN
     Indication: Hypertension
     Dosage: 300 MG
     Route: 048
     Dates: start: 20140602
  5. BISOPROLOL [Concomitant]
     Active Substance: BISOPROLOL
     Indication: Congestive cardiomyopathy
     Dosage: 1.25 UNK
  6. BISOPROLOL [Concomitant]
     Active Substance: BISOPROLOL
     Dosage: 2.5 MG, DAILY
  7. AMIODARONE [Concomitant]
     Active Substance: AMIODARONE
     Dosage: 200 UNK
  8. DAPAGLIFLOZIN [Concomitant]
     Active Substance: DAPAGLIFLOZIN
     Dosage: UNK
  9. SPIRONOLACTONE [Concomitant]
     Active Substance: SPIRONOLACTONE
     Dosage: 12.5 UNK
  10. VALSARTAN [Concomitant]
     Active Substance: VALSARTAN
     Dosage: UNK
  11. NICOPATCH [Concomitant]
     Active Substance: NICOTINE
     Dosage: UNK

REACTIONS (1)
  - Ejection fraction decreased [Recovered/Resolved with Sequelae]

NARRATIVE: CASE EVENT DATE: 20220104
